FAERS Safety Report 8333686-X (Version None)
Quarter: 2012Q2

REPORT INFORMATION
  Report Type: 
  Country: None (occurrence: None)
  Receive Date: 20120503
  Receipt Date: 20120419
  Transmission Date: 20120825
  Serious: No
  Sender: FDA-Public Use
  Company Number: US-BAYER-2012-038295

PATIENT
  Sex: Female

DRUGS (1)
  1. CLIMARA PRO [Suspect]

REACTIONS (4)
  - BLADDER DISORDER [None]
  - VAGINAL DISORDER [None]
  - APPLICATION SITE SWELLING [None]
  - APPLICATION SITE PRURITUS [None]
